FAERS Safety Report 5872750-1 (Version None)
Quarter: 2008Q3

REPORT INFORMATION
  Report Type: 
  Country: None (occurrence: None)
  Receive Date: 20080905
  Receipt Date: 20080829
  Transmission Date: 20090109
  Serious: Yes (Hospitalization, Other)
  Sender: FDA-Public Use
  Company Number: US-AMGEN-QUU304939

PATIENT
  Sex: Female

DRUGS (2)
  1. ENBREL [Suspect]
     Indication: RHEUMATOID ARTHRITIS
     Route: 058
     Dates: start: 20051215
  2. METHOTREXATE [Concomitant]
     Route: 048
     Dates: start: 20051001

REACTIONS (3)
  - BLOOD PRESSURE ABNORMAL [None]
  - CYSTITIS [None]
  - TEMPERATURE INTOLERANCE [None]
